FAERS Safety Report 9246869 (Version 1)
Quarter: 2013Q2

REPORT INFORMATION
  Report Type: Spontaneous
  Country: US (occurrence: US)
  Receive Date: 20130422
  Receipt Date: 20130422
  Transmission Date: 20140414
  Serious: Yes (Other)
  Sender: FDA-Public Use
  Company Number: US-GLAXOSMITHKLINE-A1020217A

PATIENT
  Sex: Female

DRUGS (6)
  1. ADVAIR [Suspect]
     Indication: CHRONIC OBSTRUCTIVE PULMONARY DISEASE
     Dosage: 1PUFF TWICE PER DAY
     Route: 055
     Dates: start: 2003
  2. SPIRIVA [Concomitant]
  3. ALTACE [Concomitant]
  4. LIPITOR [Concomitant]
  5. ZETIA [Concomitant]
  6. XANAX [Concomitant]

REACTIONS (3)
  - Macular degeneration [Not Recovered/Not Resolved]
  - Blepharospasm [Not Recovered/Not Resolved]
  - Eye haemorrhage [Not Recovered/Not Resolved]
